FAERS Safety Report 10062085 (Version 7)
Quarter: 2014Q4

REPORT INFORMATION
  Report Type: Spontaneous
  Country: US (occurrence: None)
  Receive Date: 20140403
  Receipt Date: 20141204
  Transmission Date: 20150528
  Serious: Yes (Other)
  Sender: FDA-Public Use
  Company Number: AEGR000317

PATIENT
  Age: 67 Year
  Sex: Female
  Weight: 51.7 kg

DRUGS (11)
  1. ASPIRIN (ACETYLSALICYLIC ACID) [Concomitant]
     Active Substance: ASPIRIN
  2. VITAMIN D (ERGOCALCIFEROL) [Concomitant]
     Active Substance: ERGOCALCIFEROL
  3. FISH OIL (FISH OIL) [Concomitant]
     Active Substance: FISH OIL
  4. JUXTAPID [Suspect]
     Active Substance: LOMITAPIDE MESYLATE
     Indication: HYPERCHOLESTEROLAEMIA
     Route: 048
     Dates: start: 20140101, end: 20140518
  5. CRESTOR [Concomitant]
     Active Substance: ROSUVASTATIN CALCIUM
  6. VITAMIN E (TOCOPHERYL ACETATE) [Concomitant]
  7. BYSTOLIC [Concomitant]
     Active Substance: NEBIVOLOL HYDROCHLORIDE
  8. OMEGA 3 6 9 (OMEGA 9 FATTY ACIDS, OMEGA-3 FATTY ACIDS, OMEGA-6 FATTY ACIDS) [Concomitant]
  9. MAGNESIUM GLUCONATE [Concomitant]
     Active Substance: MAGNESIUM GLUCONATE
  10. ALPRAZOLAM INTENSO (ALPRAZOLAM) [Concomitant]
  11. LIVALO [Concomitant]
     Active Substance: PITAVASTATIN CALCIUM

REACTIONS (12)
  - Off label use [None]
  - Early satiety [None]
  - Diarrhoea [None]
  - Major depression [None]
  - Abdominal discomfort [None]
  - Anal sphincter atony [None]
  - Abdominal distension [None]
  - Chest pain [None]
  - Frequent bowel movements [None]
  - Weight decreased [None]
  - Disease recurrence [None]
  - Fatigue [None]

NARRATIVE: CASE EVENT DATE: 201401
